FAERS Safety Report 23886356 (Version 3)
Quarter: 2024Q4

REPORT INFORMATION
  Report Type: Spontaneous
  Country: NZ (occurrence: NZ)
  Receive Date: 20240522
  Receipt Date: 20241003
  Transmission Date: 20250114
  Serious: Yes (Other)
  Sender: MYLAN
  Company Number: NZ-MYLANLABS-2024M1046697

PATIENT
  Age: 32 Year
  Sex: Male

DRUGS (2)
  1. CLOZARIL [Suspect]
     Active Substance: CLOZAPINE
     Indication: Schizophrenia
     Dosage: 550 MILLIGRAM, QD (100MG MORNING, 450MG NIGHT)
     Route: 048
     Dates: start: 20210217
  2. CLOZARIL [Suspect]
     Active Substance: CLOZAPINE
     Dosage: 525 MILLIGRAM, QD (100MG MORNING, 425MG NIGHT)
     Route: 048
     Dates: start: 20240503

REACTIONS (2)
  - Antipsychotic drug level increased [Not Recovered/Not Resolved]
  - Red cell distribution width decreased [Not Recovered/Not Resolved]

NARRATIVE: CASE EVENT DATE: 20240408
